FAERS Safety Report 8892281 (Version 1)
Quarter: 2012Q4

REPORT INFORMATION
  Report Type: 
  Country: US (occurrence: US)
  Receive Date: 20121107
  Receipt Date: 20121107
  Transmission Date: 20130627
  Serious: Yes (Other)
  Sender: FDA-Public Use
  Company Number: US-GLAXOSMITHKLINE-A0790398A

PATIENT
  Age: 69 Year
  Sex: Female
  Weight: 80.9 kg

DRUGS (13)
  1. TYKERB [Suspect]
     Indication: BREAST CANCER
     Dosage: 1250MG Per day
     Route: 048
     Dates: start: 20090507
  2. WARFARIN [Suspect]
     Indication: PRODUCT USED FOR UNKNOWN INDICATION
     Dosage: 2MG Per day
     Dates: start: 2006, end: 20090521
  3. METFORMIN [Concomitant]
  4. ALLEGRA [Concomitant]
  5. NEXIUM [Concomitant]
  6. LISINOPRIL [Concomitant]
  7. LIPITOR [Concomitant]
  8. SINGULAIR [Concomitant]
  9. FERROUS GLUCONATE [Concomitant]
  10. NASOCORT [Concomitant]
  11. ALBUTEROL [Concomitant]
  12. XELODA [Concomitant]
     Dosage: 1000MG Cyclic
     Route: 048
     Dates: start: 2007
  13. ASA [Concomitant]
     Indication: ANTICOAGULANT THERAPY
     Route: 048
     Dates: start: 20090601

REACTIONS (10)
  - Diarrhoea [Recovered/Resolved]
  - International normalised ratio increased [Unknown]
  - Epistaxis [Unknown]
  - Contusion [Unknown]
  - Pain in extremity [Unknown]
  - Pain in extremity [Unknown]
  - Anal fissure [Unknown]
  - Iron deficiency anaemia [Unknown]
  - Metabolic disorder [Unknown]
  - Pulmonary mass [Unknown]
